FAERS Safety Report 7418370-9 (Version None)
Quarter: 2011Q2

REPORT INFORMATION
  Report Type: 
  Country: None (occurrence: None)
  Receive Date: 20110415
  Receipt Date: 20110406
  Transmission Date: 20111010
  Serious: Yes (Death, Hospitalization)
  Sender: FDA-Public Use
  Company Number: B0711007A

PATIENT
  Sex: Female
  Weight: 47 kg

DRUGS (10)
  1. PARACETAMOL [Concomitant]
     Dosage: 1G FOUR TIMES PER DAY
     Route: 048
  2. TOPALGIC (FRANCE) [Concomitant]
     Dosage: 50MG TWICE PER DAY
     Route: 048
  3. SERESTA [Concomitant]
     Dosage: 25MG PER DAY
     Route: 048
  4. KARDEGIC [Suspect]
     Dosage: 75MG PER DAY
     Route: 048
     Dates: start: 20110204, end: 20110304
  5. ARIXTRA [Suspect]
     Indication: THROMBOSIS PROPHYLAXIS
     Dosage: 2.5MG PER DAY
     Route: 058
     Dates: start: 20110204, end: 20110304
  6. EUPANTOL [Concomitant]
     Dosage: 20MG PER DAY
     Route: 048
  7. SPASFON [Concomitant]
     Dosage: 2UNIT THREE TIMES PER DAY
     Route: 048
  8. CACIT VITAMINE D3 [Concomitant]
     Dosage: 1UNIT PER DAY
     Route: 048
  9. DIFFU K [Concomitant]
     Dosage: 1UNIT PER DAY
     Route: 048
  10. ZOLPIDEM [Concomitant]
     Dosage: .5UNIT PER DAY
     Route: 048

REACTIONS (9)
  - EXTENSOR PLANTAR RESPONSE [None]
  - HAEMORRHAGIC STROKE [None]
  - VIITH NERVE PARALYSIS [None]
  - COMA SCALE ABNORMAL [None]
  - PYREXIA [None]
  - MALAISE [None]
  - HEMIPLEGIA [None]
  - PUPILS UNEQUAL [None]
  - CONVULSION [None]
